FAERS Safety Report 5523081-0 (Version None)
Quarter: 2007Q4

REPORT INFORMATION
  Report Type: 
  Country: None (occurrence: None)
  Receive Date: 20071121
  Receipt Date: 20071113
  Transmission Date: 20080405
  Serious: Yes (Other)
  Sender: FDA-Public Use
  Company Number: PHBS2007JP17993

PATIENT
  Age: 7 Year

DRUGS (2)
  1. TEGRETOL [Suspect]
     Indication: FACIAL SPASM
     Dosage: UNK, UNK
     Route: 048
  2. MYSTAN AZWELL [Concomitant]
     Route: 048

REACTIONS (2)
  - CONVULSION [None]
  - THERAPEUTIC RESPONSE DECREASED [None]
